FAERS Safety Report 6772047-1 (Version None)
Quarter: 2010Q2

REPORT INFORMATION
  Report Type: 
  Country: None (occurrence: None)
  Receive Date: 20100616
  Receipt Date: 20100615
  Transmission Date: 20101027
  Serious: Yes (Hospitalization)
  Sender: FDA-Public Use
  Company Number: A0851183A

PATIENT
  Age: 62 Year
  Sex: Female
  Weight: 90.9 kg

DRUGS (8)
  1. AVANDIA [Suspect]
     Dosage: 8MG PER DAY
     Route: 048
     Dates: start: 19991101, end: 20040701
  2. AVANDAMET [Suspect]
     Dosage: 4MG TWICE PER DAY
     Route: 048
     Dates: start: 20040701, end: 20090501
  3. LISINOPRIL [Concomitant]
  4. PREMARIN [Concomitant]
  5. METOPROLOL [Concomitant]
  6. GLIPIZIDE [Concomitant]
  7. ZANTAC [Concomitant]
  8. HCTZ [Concomitant]

REACTIONS (3)
  - CARDIAC DISORDER [None]
  - CEREBROVASCULAR ACCIDENT [None]
  - THROMBOSIS [None]
